FAERS Safety Report 9988088 (Version 2)
Quarter: 2014Q2

REPORT INFORMATION
  Report Type: Spontaneous
  Country: GB (occurrence: GB)
  Receive Date: 20140307
  Receipt Date: 20140625
  Transmission Date: 20141212
  Serious: Yes (Hospitalization, Other)
  Sender: FDA-Public Use
  Company Number: GB-JNJFOC-20140217717

PATIENT
  Age: 78 Year
  Sex: Male
  Weight: 84.7 kg

DRUGS (10)
  1. DAKTARIN [Suspect]
     Route: 048
  2. DAKTARIN [Suspect]
     Indication: ORAL CANDIDIASIS
     Dosage: TO BE TAKEN AFTER FOOD; CUMULATIVE DOSE 380
     Route: 048
     Dates: start: 20140124, end: 20140128
  3. WARFARIN [Interacting]
     Indication: ATRIAL FIBRILLATION
     Dosage: 3 MG/4 MG ALTERNATE DAYS
     Route: 048
     Dates: start: 20130904, end: 20140212
  4. ADCAL-D3 [Concomitant]
     Route: 065
  5. ATORVASTATIN [Concomitant]
     Route: 065
  6. SPIRONOLACTONE [Concomitant]
     Route: 065
  7. FERROUS FUMARATE [Concomitant]
     Route: 065
  8. FUROSEMIDE [Concomitant]
     Route: 065
  9. NOVOMIX [Concomitant]
     Route: 065
  10. BISOPROLOL [Concomitant]
     Route: 065

REACTIONS (10)
  - Acute myocardial infarction [Unknown]
  - Chest pain [Unknown]
  - Duodenal ulcer [Recovering/Resolving]
  - Gastric ulcer [Recovering/Resolving]
  - Drug interaction [Unknown]
  - International normalised ratio increased [Recovering/Resolving]
  - Upper gastrointestinal haemorrhage [Recovering/Resolving]
  - Haemoglobin decreased [Unknown]
  - Medication error [Unknown]
  - Faeces discoloured [Recovering/Resolving]
